FAERS Safety Report 14944390 (Version 9)
Quarter: 2019Q4

REPORT INFORMATION
  Report Type: Report from Study
  Country: CA (occurrence: CA)
  Receive Date: 20180528
  Receipt Date: 20191204
  Transmission Date: 20200122
  Serious: Yes (Other)
  Sender: FDA-Public Use
  Company Number: CA-BRISTOL-MYERS SQUIBB COMPANY-BMS-2016-086190

PATIENT
  Age: 65 Year
  Sex: Male

DRUGS (8)
  1. CELEBREX [Concomitant]
     Active Substance: CELECOXIB
     Indication: PRODUCT USED FOR UNKNOWN INDICATION
     Route: 065
  2. CALCITE [CALCIUM CITRATE] [Concomitant]
     Indication: PRODUCT USED FOR UNKNOWN INDICATION
     Route: 065
  3. ALENDRONATE [Concomitant]
     Active Substance: ALENDRONATE SODIUM
     Indication: PRODUCT USED FOR UNKNOWN INDICATION
     Route: 065
  4. APO HYDRO [Concomitant]
     Active Substance: HYDROCHLOROTHIAZIDE
     Indication: PRODUCT USED FOR UNKNOWN INDICATION
     Route: 065
  5. ABATACEPT [Suspect]
     Active Substance: ABATACEPT
     Indication: RHEUMATOID ARTHRITIS
     Dosage: 750 MG, Q3WK
     Route: 042
     Dates: start: 20130201
  6. METHOTREXATE. [Concomitant]
     Active Substance: METHOTREXATE
     Indication: PRODUCT USED FOR UNKNOWN INDICATION
     Route: 065
  7. PREDNISONE. [Concomitant]
     Active Substance: PREDNISONE
     Indication: PRODUCT USED FOR UNKNOWN INDICATION
     Route: 065
  8. ALTACE [Concomitant]
     Active Substance: RAMIPRIL
     Indication: PRODUCT USED FOR UNKNOWN INDICATION
     Route: 065

REACTIONS (11)
  - Localised infection [Recovering/Resolving]
  - Pseudomonas infection [Unknown]
  - Wound [Unknown]
  - Erythema [Unknown]
  - Off label use [Unknown]
  - Purulent discharge [Unknown]
  - Wound infection pseudomonas [Unknown]
  - Pain [Unknown]
  - Wound infection [Unknown]
  - Musculoskeletal stiffness [Recovered/Resolved]
  - Gout [Unknown]

NARRATIVE: CASE EVENT DATE: 2015
